FAERS Safety Report 16976575 (Version 1)
Quarter: 2019Q4

REPORT INFORMATION
  Report Type: Spontaneous
  Country: RU (occurrence: RU)
  Receive Date: 20191030
  Receipt Date: 20191030
  Transmission Date: 20200122
  Serious: Yes (Other)
  Sender: FDA-Public Use
  Company Number: NVSC2019RU002824

PATIENT
  Sex: Female

DRUGS (5)
  1. RISARG [RIBOCICLIB SUCCINATE] [Suspect]
     Active Substance: RIBOCICLIB SUCCINATE
     Dosage: 600 MG
     Route: 065
     Dates: start: 20190520, end: 20190707
  2. LETROZOLE. [Concomitant]
     Active Substance: LETROZOLE
     Indication: PRODUCT USED FOR UNKNOWN INDICATION
     Dosage: UNK
     Route: 065
  3. RISARG [RIBOCICLIB SUCCINATE] [Suspect]
     Active Substance: RIBOCICLIB SUCCINATE
     Indication: BREAST CANCER
     Dosage: 600 MG
     Route: 065
     Dates: start: 20190101, end: 20190512
  4. KISQALI [Suspect]
     Active Substance: RIBOCICLIB
     Indication: BREAST CANCER
     Dosage: 600 MG
     Route: 065
  5. RISARG [RIBOCICLIB SUCCINATE] [Suspect]
     Active Substance: RIBOCICLIB SUCCINATE
     Dosage: 600 MG
     Route: 065
     Dates: start: 20190817, end: 20191004

REACTIONS (5)
  - Breast cancer [Recovering/Resolving]
  - Malignant neoplasm progression [Recovering/Resolving]
  - Eructation [Unknown]
  - Decreased appetite [Unknown]
  - Metastases to peritoneum [Recovering/Resolving]

NARRATIVE: CASE EVENT DATE: 201906
